FAERS Safety Report 18793661 (Version 1)
Quarter: 2021Q1

REPORT INFORMATION
  Report Type: Spontaneous
  Country: US (occurrence: US)
  Receive Date: 20210126
  Receipt Date: 20210126
  Transmission Date: 20210419
  Serious: No
  Sender: FDA-Public Use
  Company Number: None

PATIENT
  Sex: Male

DRUGS (3)
  1. ESBRIET [Suspect]
     Active Substance: PIRFENIDONE
     Indication: IDIOPATHIC PULMONARY FIBROSIS
     Route: 048
     Dates: start: 20171219
  2. METOPROL TARTARATE [Concomitant]
     Active Substance: METOPROLOL TARTRATE
  3. ELIQUIS [Suspect]
     Active Substance: APIXABAN

REACTIONS (1)
  - Dyspnoea [None]
